FAERS Safety Report 8927239 (Version 1)
Quarter: 2012Q4

REPORT INFORMATION
  Report Type: 
  Country: US (occurrence: US)
  Receive Date: 20121127
  Receipt Date: 20121127
  Transmission Date: 20130627
  Serious: Yes (Hospitalization, Other)
  Sender: FDA-Public Use
  Company Number: US-US-EMD SERONO, INC.-7177066

PATIENT
  Sex: Female

DRUGS (2)
  1. SAIZEN [(SOMATROPIN (RDNA ORIGIN) FOR INJECTION)] [Suspect]
     Indication: INSULIN-LIKE GROWTH FACTOR INCREASED
     Dates: start: 1995, end: 201208
  2. SAIZEN [(SOMATROPIN (RDNA ORIGIN) FOR INJECTION)] [Suspect]
     Dates: start: 201211

REACTIONS (9)
  - Pancreatitis relapsing [Unknown]
  - Sphincter of Oddi dysfunction [Unknown]
  - Joint injury [Not Recovered/Not Resolved]
  - Electrocution [Unknown]
  - Vocal cord disorder [Unknown]
  - Osteoarthritis [Unknown]
  - Auricular perichondritis [Not Recovered/Not Resolved]
  - Fluid retention [Recovered/Resolved]
  - Arthralgia [Recovered/Resolved]
